FAERS Safety Report 5378497-2 (Version None)
Quarter: 2007Q3

REPORT INFORMATION
  Report Type: 
  Country: None (occurrence: None)
  Receive Date: 20070705
  Receipt Date: 20070622
  Transmission Date: 20080115
  Serious: Yes (Other)
  Sender: FDA-Public Use
  Company Number: US-KINGPHARMUSA00001-K200700808

PATIENT

DRUGS (1)
  1. SKELAXIN [Suspect]

REACTIONS (1)
  - STEVENS-JOHNSON SYNDROME [None]
